FAERS Safety Report 8393553-2 (Version None)
Quarter: 2012Q2

REPORT INFORMATION
  Report Type: 
  Country: None (occurrence: None)
  Receive Date: 20120529
  Receipt Date: 20120523
  Transmission Date: 20120825
  Serious: Yes (Hospitalization)
  Sender: FDA-Public Use
  Company Number: AT-BRISTOL-MYERS SQUIBB COMPANY-16552226

PATIENT
  Age: 49 Year
  Sex: Male

DRUGS (3)
  1. IPILIMUMAB [Suspect]
     Indication: MALIGNANT MELANOMA
     Route: 042
     Dates: start: 20120405
  2. DIPYRONE TAB [Concomitant]
     Dates: start: 20120323, end: 20120512
  3. HYDAL [Concomitant]
     Dates: start: 20120405, end: 20120424

REACTIONS (1)
  - ARTHRALGIA [None]
